FAERS Safety Report 25341524 (Version 1)
Quarter: 2025Q2

REPORT INFORMATION
  Report Type: Spontaneous
  Country: DE (occurrence: DE)
  Receive Date: 20250521
  Receipt Date: 20250521
  Transmission Date: 20250717
  Serious: Yes (Other)
  Sender: MYLAN
  Company Number: DE-MYLANLABS-2025M1042920

PATIENT
  Age: 4 Year
  Sex: Female

DRUGS (20)
  1. HYDROCORTISONE [Suspect]
     Active Substance: HYDROCORTISONE
     Indication: Pseudoprecocious puberty
  2. HYDROCORTISONE [Suspect]
     Active Substance: HYDROCORTISONE
     Route: 065
  3. HYDROCORTISONE [Suspect]
     Active Substance: HYDROCORTISONE
     Route: 065
  4. HYDROCORTISONE [Suspect]
     Active Substance: HYDROCORTISONE
  5. ANASTROZOLE [Suspect]
     Active Substance: ANASTROZOLE
     Indication: Adrenocortical carcinoma
     Dosage: 1 MILLIGRAM, QD
  6. ANASTROZOLE [Suspect]
     Active Substance: ANASTROZOLE
     Dosage: 1 MILLIGRAM, QD
     Route: 065
  7. ANASTROZOLE [Suspect]
     Active Substance: ANASTROZOLE
     Dosage: 1 MILLIGRAM, QD
     Route: 065
  8. ANASTROZOLE [Suspect]
     Active Substance: ANASTROZOLE
     Dosage: 1 MILLIGRAM, QD
  9. MITOTANE [Suspect]
     Active Substance: MITOTANE
     Indication: Adrenocortical carcinoma
     Dosage: 65 MILLIGRAM/KILOGRAM, QD
  10. MITOTANE [Suspect]
     Active Substance: MITOTANE
     Dosage: 65 MILLIGRAM/KILOGRAM, QD
     Route: 065
  11. MITOTANE [Suspect]
     Active Substance: MITOTANE
     Dosage: 65 MILLIGRAM/KILOGRAM, QD
     Route: 065
  12. MITOTANE [Suspect]
     Active Substance: MITOTANE
     Dosage: 65 MILLIGRAM/KILOGRAM, QD
  13. FLUDROCORTISONE [Suspect]
     Active Substance: FLUDROCORTISONE
     Indication: Pseudoprecocious puberty
  14. FLUDROCORTISONE [Suspect]
     Active Substance: FLUDROCORTISONE
     Route: 065
  15. FLUDROCORTISONE [Suspect]
     Active Substance: FLUDROCORTISONE
     Route: 065
  16. FLUDROCORTISONE [Suspect]
     Active Substance: FLUDROCORTISONE
  17. LEVOTHYROXINE [Concomitant]
     Active Substance: LEVOTHYROXINE
     Indication: Central hypothyroidism
  18. LEVOTHYROXINE [Concomitant]
     Active Substance: LEVOTHYROXINE
     Route: 065
  19. LEVOTHYROXINE [Concomitant]
     Active Substance: LEVOTHYROXINE
     Route: 065
  20. LEVOTHYROXINE [Concomitant]
     Active Substance: LEVOTHYROXINE

REACTIONS (2)
  - Drug ineffective [Unknown]
  - Off label use [Unknown]
